FAERS Safety Report 4618923-7 (Version None)
Quarter: 2005Q2

REPORT INFORMATION
  Report Type: 
  Country: None (occurrence: None)
  Receive Date: 20050310
  Receipt Date: 20030617
  Transmission Date: 20051028
  Serious: Yes (Hospitalization)
  Sender: FDA-Public Use
  Company Number: F03200300008

PATIENT
  Sex: Male

DRUGS (4)
  1. ELOXATIN [Suspect]
     Indication: COLON CANCER
     Dosage: 85 MG/M2, Q15 DAYS - INTRAVENOUS NOS
     Route: 042
     Dates: start: 20030507, end: 20030507
  2. TEZACITABINE - 10 MG [Suspect]
     Indication: RECTAL CANCER
     Dosage: 150 MG/M2 Q2W - INTRAVENOUS NOS
     Route: 042
     Dates: start: 20030506, end: 20030520
  3. ZOLEDRONIC ACID [Concomitant]
  4. MULTI-VITAMINS [Concomitant]

REACTIONS (3)
  - CHILLS [None]
  - DEHYDRATION [None]
  - PYREXIA [None]
